FAERS Safety Report 8031778-6 (Version None)
Quarter: 2012Q1

REPORT INFORMATION
  Report Type: 
  Country: None (occurrence: None)
  Receive Date: 20120109
  Receipt Date: 20120105
  Transmission Date: 20120608
  Serious: Yes (Life-Threatening)
  Sender: FDA-Public Use
  Company Number: FR-ASTRAZENECA-2012SE01095

PATIENT
  Age: 27750 Day
  Sex: Female

DRUGS (4)
  1. CELOCURINE [Suspect]
     Indication: GENERAL ANAESTHESIA
     Dates: start: 20110606
  2. CEFOXITIN [Suspect]
     Indication: ANTIBIOTIC PROPHYLAXIS
     Dates: start: 20110606
  3. DIPRIVAN [Suspect]
     Indication: GENERAL ANAESTHESIA
     Route: 042
     Dates: start: 20110606
  4. SUFENTANYL [Suspect]
     Indication: GENERAL ANAESTHESIA
     Dates: start: 20110606

REACTIONS (4)
  - RASH [None]
  - HYPOTENSION [None]
  - HEART RATE INCREASED [None]
  - HAEMODYNAMIC INSTABILITY [None]
